FAERS Safety Report 5651758-5 (Version None)
Quarter: 2008Q1

REPORT INFORMATION
  Report Type: 
  Country: None (occurrence: None)
  Receive Date: 20080131
  Receipt Date: 20071228
  Transmission Date: 20080703
  Serious: No
  Sender: FDA-Public Use
  Company Number: US200711001137

PATIENT
  Age: 51 Year
  Sex: Female
  Weight: 190 kg

DRUGS (22)
  1. BYETTA [Suspect]
     Indication: TYPE 2 DIABETES MELLITUS
     Dosage: 5 UG, 2/D, SUBCUTANEOUS; 10 UG, 2/D; SUBCUTANEOUS; 5 UG, 2/D
     Route: 058
     Dates: start: 20070901, end: 20070101
  2. BYETTA [Suspect]
     Indication: TYPE 2 DIABETES MELLITUS
     Dosage: 5 UG, 2/D, SUBCUTANEOUS; 10 UG, 2/D; SUBCUTANEOUS; 5 UG, 2/D
     Route: 058
     Dates: start: 20070701, end: 20070901
  3. BYETTA [Suspect]
     Indication: TYPE 2 DIABETES MELLITUS
     Dosage: 5 UG, 2/D, SUBCUTANEOUS; 10 UG, 2/D; SUBCUTANEOUS; 5 UG, 2/D
     Route: 058
     Dates: start: 20070101
  4. . [Concomitant]
  5. CLONAZEPAM [Concomitant]
  6. C-PAP [Concomitant]
  7. BENADRYL [Concomitant]
  8. ADVAIR DISKUS 100/50 [Concomitant]
  9. SPIRIVA [Concomitant]
  10. LUNESTA [Concomitant]
  11. NAPROXEN    /POL/ (NAPROXEN SODIUM) [Concomitant]
  12. PROTONIX [Concomitant]
  13. LEVOTHYROXINE SODIUM [Concomitant]
  14. DIOVAN (HYDROCHLOROTHIAZIDE, VALSARTAN) [Concomitant]
  15. LISINOPRIL       /USA/ (LISINOPRIL) [Concomitant]
  16. PAXIL [Concomitant]
  17. METFORMIN HCL [Concomitant]
  18. TOPAMAX [Concomitant]
  19. LORATADINE [Concomitant]
  20. HYDROCHLOROTHIAZIDE [Concomitant]
  21. CARVEDILOL [Concomitant]
  22. ASPIRIN [Concomitant]

REACTIONS (4)
  - ASTHMA [None]
  - COUGH [None]
  - ERUCTATION [None]
  - WEIGHT DECREASED [None]
